FAERS Safety Report 5537010-7 (Version None)
Quarter: 2007Q4

REPORT INFORMATION
  Report Type: 
  Country: None (occurrence: None)
  Receive Date: 20071204
  Receipt Date: 20071120
  Transmission Date: 20080405
  Serious: Yes (Other)
  Sender: FDA-Public Use
  Company Number: 02100-JPN-07-0752

PATIENT
  Age: 63 Year
  Sex: Male

DRUGS (1)
  1. CILOSTAZOL [Suspect]
     Indication: ARTERIOSCLEROSIS OBLITERANS
     Dosage: 200 MG
     Route: 048
     Dates: start: 20071112, end: 20071114

REACTIONS (2)
  - BLOOD CREATININE INCREASED [None]
  - RENAL DISORDER [None]
